FAERS Safety Report 24047123 (Version 1)
Quarter: 2024Q3

REPORT INFORMATION
  Report Type: Spontaneous
  Country: US (occurrence: None)
  Receive Date: 20240702
  Receipt Date: 20240702
  Transmission Date: 20241017
  Serious: Yes (Other)
  Sender: Public
  Company Number: None

PATIENT
  Age: 28 Year
  Sex: Female

DRUGS (1)
  1. QBREXZA [Suspect]
     Active Substance: GLYCOPYRRONIUM TOSYLATE
     Indication: Hyperhidrosis
     Dates: start: 20240702, end: 20240702

REACTIONS (3)
  - Dry mouth [None]
  - Dry throat [None]
  - Dry eye [None]

NARRATIVE: CASE EVENT DATE: 20240702
